FAERS Safety Report 15838949 (Version 2)
Quarter: 2019Q2

REPORT INFORMATION
  Report Type: Spontaneous
  Country: PT (occurrence: PT)
  Receive Date: 20190117
  Receipt Date: 20190416
  Transmission Date: 20190711
  Serious: Yes (Life-Threatening, Hospitalization, Other)
  Sender: FDA-Public Use
  Company Number: PT-MYLANLABS-2019M1003992

PATIENT
  Age: 71 Year
  Sex: Female

DRUGS (1)
  1. METFORMIN [Suspect]
     Active Substance: METFORMIN HYDROCHLORIDE
     Indication: PRODUCT USED FOR UNKNOWN INDICATION
     Dosage: UNK
     Route: 048

REACTIONS (12)
  - Supraventricular tachycardia [Unknown]
  - Overdose [Unknown]
  - Altered state of consciousness [Unknown]
  - Hyperkalaemia [Unknown]
  - Cardio-respiratory arrest [Unknown]
  - Acute kidney injury [Unknown]
  - Toxicity to various agents [Unknown]
  - Slow speech [Unknown]
  - Hypothermia [Unknown]
  - Lactic acidosis [Recovered/Resolved]
  - Hypoglycaemia [Unknown]
  - General physical health deterioration [Unknown]
